FAERS Safety Report 14367652 (Version 1)
Quarter: 2018Q1

REPORT INFORMATION
  Report Type: Other
  Country: ES (occurrence: ES)
  Receive Date: 20180109
  Receipt Date: 20180109
  Transmission Date: 20180509
  Serious: Yes (Life-Threatening, Hospitalization, Congenital Anomaly)
  Sender: FDA-Public Use
  Company Number: ES-GLENMARK PHARMACEUTICALS-2017GMK030498

PATIENT

DRUGS (2)
  1. OLMESARTAN MEDOXOMIL. [Suspect]
     Active Substance: OLMESARTAN MEDOXOMIL
     Indication: ESSENTIAL HYPERTENSION
     Dosage: UNK
     Route: 065
  2. AMLODIPINE [Concomitant]
     Active Substance: AMLODIPINE BESYLATE
     Indication: ESSENTIAL HYPERTENSION
     Dosage: UNK
     Route: 065

REACTIONS (7)
  - Pulmonary hypoplasia [Recovering/Resolving]
  - Pneumothorax [Recovering/Resolving]
  - Off label use [Not Recovered/Not Resolved]
  - Foetal exposure during pregnancy [Unknown]
  - Oligohydramnios [Not Recovered/Not Resolved]
  - Potter^s syndrome [Recovering/Resolving]
  - Hypotension [Unknown]
